FAERS Safety Report 6665541-5 (Version None)
Quarter: 2010Q2

REPORT INFORMATION
  Report Type: 
  Country: None (occurrence: None)
  Receive Date: 20100402
  Receipt Date: 20100326
  Transmission Date: 20101027
  Serious: Yes (Hospitalization)
  Sender: FDA-Public Use
  Company Number: US-ASTRAZENECA-2010SE13529

PATIENT
  Age: 67 Year
  Sex: Male

DRUGS (4)
  1. NEXIUM [Suspect]
     Indication: GASTROOESOPHAGEAL REFLUX DISEASE
     Dosage: UNKNOWN STRENGTH ONCE A DAY
     Route: 048
  2. GENERIC GREEN MEDICATION [Suspect]
  3. DILANTIN [Concomitant]
  4. INSULIN [Concomitant]

REACTIONS (4)
  - ANTICONVULSANT DRUG LEVEL DECREASED [None]
  - DISCOMFORT [None]
  - DRUG DOSE OMISSION [None]
  - GASTRIC PH DECREASED [None]
